FAERS Safety Report 13900310 (Version 1)
Quarter: 2017Q3

REPORT INFORMATION
  Report Type: Spontaneous
  Country: PT (occurrence: PT)
  Receive Date: 20170824
  Receipt Date: 20170824
  Transmission Date: 20171127
  Serious: Yes (Life-Threatening)
  Sender: FDA-Public Use
  Company Number: PT-PFIZER INC-2017361947

PATIENT
  Age: 52 Year
  Sex: Male
  Weight: 88 kg

DRUGS (5)
  1. HYDROCHLOROTHIAZIDE/NEBIVOLOL HYDROCHLORIDE [Concomitant]
     Dosage: UNK
     Route: 048
  2. FENOFIBRATE. [Concomitant]
     Active Substance: FENOFIBRATE
     Dosage: UNK
     Route: 048
  3. CHAMPIX [Suspect]
     Active Substance: VARENICLINE TARTRATE
     Indication: SMOKING CESSATION THERAPY
     Dosage: 0.5 MG, 1X/DAY
     Route: 048
     Dates: start: 20170304, end: 20170306
  4. CHAMPIX [Suspect]
     Active Substance: VARENICLINE TARTRATE
     Dosage: 0.5 MG, 2X/DAY
     Route: 048
     Dates: start: 20170307, end: 20170310
  5. CHAMPIX [Suspect]
     Active Substance: VARENICLINE TARTRATE
     Dosage: 1 MG, 2X/DAY
     Route: 048
     Dates: start: 20170311, end: 20170516

REACTIONS (3)
  - Depression [Recovering/Resolving]
  - Intentional self-injury [Recovered/Resolved]
  - Nightmare [Unknown]

NARRATIVE: CASE EVENT DATE: 201704
